FAERS Safety Report 15573961 (Version 1)
Quarter: 2018Q4

REPORT INFORMATION
  Report Type: Report from Study
  Country: US (occurrence: US)
  Receive Date: 20181101
  Receipt Date: 20181101
  Transmission Date: 20190205
  Serious: Yes (Other)
  Sender: FDA-Public Use
  Company Number: US-ROCHE-2205697

PATIENT

DRUGS (2)
  1. BEVACIZUMAB. [Suspect]
     Active Substance: BEVACIZUMAB
     Indication: GLIOMA
     Dosage: DAYS 1 AND 15 OF EACH 28-DAY CYCLE.
     Route: 042
  2. PLERIXAFOR [Suspect]
     Active Substance: PLERIXAFOR
     Indication: GLIOMA
     Dosage: ON DAYS 1 TO 21 OF EACH 28 DAYS CYCLE
     Route: 058

REACTIONS (3)
  - Haemorrhage intracranial [Unknown]
  - Hypophosphataemia [Unknown]
  - Anal fistula [Unknown]
